FAERS Safety Report 4326667-4 (Version None)
Quarter: 2004Q1

REPORT INFORMATION
  Report Type: 
  Country: None (occurrence: None)
  Receive Date: 20040322
  Receipt Date: 20040129
  Transmission Date: 20041129
  Serious: No
  Sender: FDA-Public Use
  Company Number: US-JNJFOC-20040200386

PATIENT
  Age: 22 Year
  Sex: Female
  Weight: 61.2356 kg

DRUGS (4)
  1. ORTHO TRI-CYCLEN LO [Suspect]
     Indication: CONTRACEPTION
     Dosage: 1 DOSE(S), 1 IN 1 DAY, ORAL
     Route: 048
     Dates: start: 20040123
  2. ORTHO TRI-CYCLEN LO [Suspect]
     Indication: CONTRACEPTION
     Dosage: 1 DOSE(S), 1 IN 1 DAY, ORAL
     Route: 048
  3. VITAMINS (VITAMINS) [Concomitant]
  4. ANTBIOTICS (ANTIBIOTICS) [Concomitant]

REACTIONS (3)
  - OLIGOMENORRHOEA [None]
  - PREMENSTRUAL SYNDROME [None]
  - UTERINE SPASM [None]
